FAERS Safety Report 5812745-7 (Version None)
Quarter: 2008Q3

REPORT INFORMATION
  Report Type: 
  Country: None (occurrence: None)
  Receive Date: 20080717
  Receipt Date: 20080714
  Transmission Date: 20090109
  Serious: Yes (Hospitalization)
  Sender: FDA-Public Use
  Company Number: GB-BAYER-200821904GPV

PATIENT
  Age: 29 Year
  Sex: Female

DRUGS (4)
  1. CAMPATH [Suspect]
     Indication: MULTIPLE SCLEROSIS
     Dates: start: 20050901
  2. CAMPATH [Suspect]
     Dates: start: 20060901
  3. LEVOTHYROXINE SODIUM [Concomitant]
     Indication: HYPOTHYROIDISM
     Route: 048
  4. TERBUTALINE SULFATE [Concomitant]
     Indication: ASTHMA
     Route: 055

REACTIONS (2)
  - ADRENAL INSUFFICIENCY [None]
  - CASTLEMAN'S DISEASE [None]
